FAERS Safety Report 17665616 (Version 1)
Quarter: 2020Q2

REPORT INFORMATION
  Report Type: Spontaneous
  Country: US (occurrence: US)
  Receive Date: 20200413
  Receipt Date: 20200413
  Transmission Date: 20200713
  Serious: No
  Sender: FDA-Public Use
  Company Number: None

PATIENT
  Age: 43 Year
  Sex: Female

DRUGS (1)
  1. BENLYSTA [Suspect]
     Active Substance: BELIMUMAB
     Indication: SYSTEMIC LUPUS ERYTHEMATOSUS
     Route: 058
     Dates: start: 201910

REACTIONS (6)
  - Infection [None]
  - Lung disorder [None]
  - Cardiac disorder [None]
  - Condition aggravated [None]
  - Therapy interrupted [None]
  - Systemic lupus erythematosus [None]
